FAERS Safety Report 5899306-9 (Version None)
Quarter: 2008Q3

REPORT INFORMATION
  Report Type: 
  Country: None (occurrence: None)
  Receive Date: 20080925
  Receipt Date: 20080922
  Transmission Date: 20090109
  Serious: Yes (Hospitalization)
  Sender: FDA-Public Use
  Company Number: US-GILEAD-2008-0018195

PATIENT
  Sex: Female
  Weight: 81 kg

DRUGS (18)
  1. LETAIRIS [Suspect]
     Indication: PULMONARY HYPERTENSION
     Route: 048
     Dates: start: 20071004
  2. FLOLAN [Concomitant]
  3. SILDENAFIL CITRATE [Concomitant]
     Route: 048
  4. DIGOXIN [Concomitant]
     Route: 048
  5. MILRINONE LACTATE [Concomitant]
     Dosage: 0.2 MCG PER MINUTE
  6. ALDACTONE [Concomitant]
     Route: 048
  7. COUMADIN [Concomitant]
     Route: 048
  8. LASIX [Concomitant]
     Route: 048
  9. LASIX [Concomitant]
     Route: 048
  10. OXYGEN [Concomitant]
  11. ERYTHROMYCIN [Concomitant]
     Indication: SINUSITIS
  12. DEPO-PROVERA [Concomitant]
  13. TYLENOL (CAPLET) [Concomitant]
     Indication: PAIN
     Dosage: 500-100 MG
  14. ROBITUSSIN [Concomitant]
     Indication: COUGH
     Dosage: 1-2 TSP
  15. IMODIUM [Concomitant]
     Indication: DIARRHOEA
     Route: 048
  16. NASAL SALINE [Concomitant]
     Indication: SINUS CONGESTION
     Route: 045
  17. POTASSIUM CHLORIDE [Concomitant]
  18. IRON [Concomitant]
     Route: 048

REACTIONS (1)
  - RIGHT VENTRICULAR FAILURE [None]
